FAERS Safety Report 8222007-9 (Version None)
Quarter: 2012Q1

REPORT INFORMATION
  Report Type: 
  Country: None (occurrence: None)
  Receive Date: 20120320
  Receipt Date: 20120309
  Transmission Date: 20120608
  Serious: Yes (Other)
  Sender: FDA-Public Use
  Company Number: US-US-EMD SERONO, INC.-7018933

PATIENT
  Sex: Female
  Weight: 78 kg

DRUGS (8)
  1. MACRODANTIN [Concomitant]
     Indication: URINARY TRACT INFECTION
     Dosage: AT BEDTIME
  2. PROTONIX [Concomitant]
     Indication: PRODUCT USED FOR UNKNOWN INDICATION
     Dates: start: 20070901
  3. REBIF [Suspect]
     Indication: MULTIPLE SCLEROSIS
     Route: 058
     Dates: start: 20100319
  4. CYMBALTA [Concomitant]
     Indication: NEUROPATHY PERIPHERAL
     Route: 048
     Dates: start: 20090102
  5. GLUCOPHAGE [Concomitant]
     Indication: DIABETES MELLITUS
     Route: 048
     Dates: start: 20110330
  6. MIRAPEX [Concomitant]
     Dates: start: 20060501
  7. LYRICA [Concomitant]
     Indication: NEUROPATHY PERIPHERAL
     Dates: start: 20061101
  8. TYLENOL [Concomitant]
     Indication: PREMEDICATION

REACTIONS (4)
  - ULCER [None]
  - CYSTITIS [None]
  - HEPATIC ENZYME INCREASED [None]
  - THROMBOSIS [None]
